FAERS Safety Report 4912167-7 (Version None)
Quarter: 2006Q1

REPORT INFORMATION
  Report Type: 
  Country: None (occurrence: None)
  Receive Date: 20060215
  Receipt Date: 20050823
  Transmission Date: 20060701
  Serious: No
  Sender: FDA-Public Use
  Company Number: US-GLAXOSMITHKLINE-A0571492A

PATIENT
  Age: 58 Year
  Sex: Female

DRUGS (3)
  1. VALTREX [Suspect]
     Dosage: 500MG PER DAY
     Route: 048
     Dates: start: 20050701, end: 20050701
  2. HYDROCHLOROTHIAZIDE [Concomitant]
  3. FOLTX [Concomitant]

REACTIONS (2)
  - PARAESTHESIA [None]
  - SWELLING FACE [None]
